FAERS Safety Report 7559737-8 (Version None)
Quarter: 2011Q2

REPORT INFORMATION
  Report Type: 
  Country: None (occurrence: None)
  Receive Date: 20110621
  Receipt Date: 20110606
  Transmission Date: 20111010
  Serious: Yes (Hospitalization)
  Sender: FDA-Public Use
  Company Number: JP-ROCHE-781981

PATIENT
  Age: 29 Year
  Sex: Female
  Weight: 39 kg

DRUGS (41)
  1. MYCOPHENOLATE MEFETIL [Suspect]
     Route: 048
     Dates: start: 20060509, end: 20060515
  2. PANTOSIN [Concomitant]
     Route: 048
     Dates: start: 20060804, end: 20060805
  3. GLUCONSAN K [Concomitant]
     Route: 048
     Dates: start: 20060404, end: 20070726
  4. TRIAMTERENE [Concomitant]
     Route: 048
     Dates: start: 20060405, end: 20060424
  5. BONALON [Concomitant]
     Route: 048
     Dates: start: 20060420, end: 20071003
  6. MYCOPHENOLATE MEFETIL [Suspect]
     Route: 048
     Dates: start: 20061110, end: 20070419
  7. PRAVASTATIN [Concomitant]
     Route: 048
     Dates: start: 20060403
  8. OMEPRAZOLE [Concomitant]
     Route: 048
     Dates: start: 20060404
  9. ALFAROL [Concomitant]
     Route: 048
     Dates: start: 20060407, end: 20060424
  10. KAKKON-TO [Concomitant]
     Route: 048
  11. MYCOPHENOLATE MEFETIL [Suspect]
     Route: 048
     Dates: start: 20060408, end: 20060409
  12. MYCOPHENOLATE MEFETIL [Suspect]
     Route: 048
     Dates: start: 20060410, end: 20060508
  13. PROGRAF [Suspect]
     Route: 048
     Dates: start: 20060327
  14. GASMOTIN [Suspect]
     Indication: GASTROINTESTINAL DISORDER
     Dosage: NOTE: DOSAGE IS UNCERTAIN.
     Route: 048
     Dates: start: 20070201, end: 20070704
  15. NORVASC [Concomitant]
     Route: 048
     Dates: start: 20060403
  16. RIKKUNSHI-TO [Concomitant]
     Dosage: DOSE FORM: PERORAL AGENT
     Route: 048
     Dates: start: 20060404, end: 20060419
  17. SULFAMETHOXAZOLE [Concomitant]
     Route: 048
     Dates: start: 20060403
  18. EMPECID [Concomitant]
     Route: 048
     Dates: start: 20060403, end: 20070328
  19. POVIDONE IODINE [Concomitant]
     Dosage: DOSE FORM: INCLUDE ASPECT ROUTE: OROPHARINGEAL
     Dates: start: 20060801
  20. MYCOPHENOLATE MEFETIL [Suspect]
     Route: 048
     Dates: start: 20060327, end: 20060328
  21. MYCOPHENOLATE MEFETIL [Suspect]
     Route: 048
     Dates: start: 20060403, end: 20060407
  22. MYCOPHENOLATE MEFETIL [Suspect]
     Route: 048
     Dates: start: 20060524, end: 20060619
  23. MYCOPHENOLATE MEFETIL [Suspect]
     Route: 048
     Dates: start: 20060928, end: 20061109
  24. SOLU-MEDROL [Concomitant]
     Route: 042
     Dates: start: 20060327, end: 20060329
  25. ONEALFA [Concomitant]
     Route: 048
     Dates: start: 20071004
  26. MYCOPHENOLATE MEFETIL [Suspect]
     Route: 048
     Dates: start: 20060516, end: 20060523
  27. MYCOPHENOLATE MEFETIL [Suspect]
     Route: 048
     Dates: start: 20070420, end: 20070702
  28. LASIX [Concomitant]
     Dosage: DOSE FORM: PERORAL AGENT
     Route: 048
     Dates: start: 20060329, end: 20060424
  29. CINAL [Concomitant]
     Dosage: DOSE FORM: PERORAL AGENT
     Route: 048
  30. MYCOPHENOLATE MEFETIL [Suspect]
     Route: 048
     Dates: start: 20070703
  31. PREDNISOLONE [Suspect]
     Route: 048
     Dates: start: 20060403, end: 20070313
  32. BUFFERIN [Concomitant]
     Dosage: DOSE FORM: PERORAL AGENT
     Route: 048
     Dates: start: 20060403
  33. ENALAPRIL MALEATE [Concomitant]
     Dates: start: 20060413
  34. HACHIAZULE [Concomitant]
     Dosage: DOSE FORM: GRANULATED POWDER ROUTE: OROPHARINGEAL
     Route: 050
     Dates: start: 20070215
  35. RIZE [Concomitant]
     Route: 048
  36. AMLODIPINE [Concomitant]
     Route: 048
  37. MYCOPHENOLATE MEFETIL [Suspect]
     Route: 048
     Dates: start: 20060329, end: 20060402
  38. MYCOPHENOLATE MEFETIL [Suspect]
     Route: 048
     Dates: start: 20060620, end: 20060927
  39. MEROPENEM [Suspect]
     Indication: UPPER RESPIRATORY TRACT INFLAMMATION
     Route: 042
     Dates: start: 20091001, end: 20091001
  40. FERROUS CITRATE [Concomitant]
     Route: 048
  41. VALGANCICLOVIR [Concomitant]
     Route: 048
     Dates: start: 20060403, end: 20070328

REACTIONS (9)
  - BRONCHITIS [None]
  - ANAEMIA [None]
  - OVARIAN CYST [None]
  - GASTROINTESTINAL DISORDER [None]
  - UPPER RESPIRATORY TRACT INFLAMMATION [None]
  - IMMUNODEFICIENCY COMMON VARIABLE [None]
  - NAUSEA [None]
  - WHITE BLOOD CELL COUNT DECREASED [None]
  - DIARRHOEA [None]
